FAERS Safety Report 9498495 (Version 1)
Quarter: 2013Q3

REPORT INFORMATION
  Report Type: Spontaneous
  Country: US (occurrence: US)
  Receive Date: 20130904
  Receipt Date: 20130904
  Transmission Date: 20140515
  Serious: Yes (Hospitalization)
  Sender: FDA-Public Use
  Company Number: US-BRISTOL-MYERS SQUIBB COMPANY-19209725

PATIENT
  Age: 59 Year
  Sex: Female
  Weight: 45.35 kg

DRUGS (1)
  1. ORENCIA [Suspect]
     Indication: RHEUMATOID ARTHRITIS
     Dosage: INFUSION?LAST DOSE OF ORENCIA IV WAS EITHER JUN2012 OR JUL2012
     Route: 042

REACTIONS (5)
  - Splenic injury [Recovered/Resolved]
  - Convulsion [Unknown]
  - Haemorrhage [Unknown]
  - Carpal tunnel syndrome [Unknown]
  - Abdominal pain [Unknown]
